FAERS Safety Report 7121058-5 (Version None)
Quarter: 2010Q4

REPORT INFORMATION
  Report Type: 
  Country: None (occurrence: None)
  Receive Date: 20101124
  Receipt Date: 20101111
  Transmission Date: 20110411
  Serious: Yes (Life-Threatening, Other)
  Sender: FDA-Public Use
  Company Number: BE-SANOFI-AVENTIS-2009SA005864

PATIENT
  Age: 5 Year
  Sex: Male
  Weight: 19.7 kg

DRUGS (7)
  1. RASBURICASE [Suspect]
     Indication: ACUTE LEUKAEMIA
     Route: 041
     Dates: start: 20091120, end: 20091120
  2. RASBURICASE [Suspect]
     Route: 041
     Dates: start: 20091121, end: 20091121
  3. ALL OTHER THERAPEUTIC PRODUCTS [Suspect]
     Dates: start: 20091120
  4. EMLA [Suspect]
     Route: 061
  5. PREDNISOLONE [Concomitant]
  6. ALL OTHER THERAPEUTIC PRODUCTS [Concomitant]
  7. COLIMYCINE [Concomitant]

REACTIONS (3)
  - HAEMOLYTIC ANAEMIA [None]
  - METHAEMOGLOBINAEMIA [None]
  - PANCREATITIS ACUTE [None]
